FAERS Safety Report 4315070-9 (Version None)
Quarter: 2004Q1

REPORT INFORMATION
  Report Type: 
  Country: None (occurrence: None)
  Receive Date: 20040310
  Receipt Date: 20011210
  Transmission Date: 20041129
  Serious: Yes (Life-Threatening, Hospitalization)
  Sender: FDA-Public Use
  Company Number: BR-ROCHE-303267

PATIENT
  Age: 45 Year
  Sex: Male
  Weight: 91 kg

DRUGS (4)
  1. PEG-INTERFERON ALFA 2A (RO 25-8310) [Suspect]
     Route: 058
     Dates: start: 20010720, end: 20020621
  2. RIBAVIRIN [Suspect]
     Route: 048
     Dates: start: 20010720
  3. CIPRAMIL [Concomitant]
     Dates: start: 20010813
  4. ALPRAZOLAM [Concomitant]
     Dates: start: 20011030

REACTIONS (11)
  - ASTHENIA [None]
  - COMA [None]
  - DEHYDRATION [None]
  - DIABETES MELLITUS [None]
  - GENITAL HAEMORRHAGE [None]
  - HYPERGLYCAEMIA [None]
  - HYPOGLYCAEMIA [None]
  - KETOACIDOSIS [None]
  - MYALGIA [None]
  - PNEUMONIA [None]
  - VOMITING [None]
